FAERS Safety Report 14780660 (Version 1)
Quarter: 2018Q2

REPORT INFORMATION
  Report Type: Spontaneous
  Country: IT (occurrence: IT)
  Receive Date: 20180419
  Receipt Date: 20180419
  Transmission Date: 20180711
  Serious: Yes (Hospitalization)
  Sender: FDA-Public Use
  Company Number: IT-MYLANLABS-2018M1026055

PATIENT
  Age: 8 Year
  Sex: Male

DRUGS (4)
  1. DEPAKIN [Concomitant]
     Active Substance: VALPROATE SODIUM
     Indication: PRODUCT USED FOR UNKNOWN INDICATION
  2. OMEPRAZOLE. [Concomitant]
     Active Substance: OMEPRAZOLE
     Indication: PRODUCT USED FOR UNKNOWN INDICATION
  3. DIDROGYL [Concomitant]
     Active Substance: CALCIFEDIOL
     Indication: PRODUCT USED FOR UNKNOWN INDICATION
  4. HYDROCORTISONE. [Suspect]
     Active Substance: HYDROCORTISONE
     Indication: EPILEPSY
     Dosage: 150 MG, QD
     Route: 048
     Dates: start: 20170520, end: 20171016

REACTIONS (4)
  - Hyperphagia [Recovering/Resolving]
  - Abnormal behaviour [Recovering/Resolving]
  - Weight increased [Recovering/Resolving]
  - Impulsive behaviour [Recovering/Resolving]

NARRATIVE: CASE EVENT DATE: 20170607
